FAERS Safety Report 7171064-X (Version None)
Quarter: 2010Q4

REPORT INFORMATION
  Report Type: 
  Country: None (occurrence: None)
  Receive Date: 20101217
  Receipt Date: 20101208
  Transmission Date: 20110411
  Serious: Yes (Other)
  Sender: FDA-Public Use
  Company Number: JP-ASTRAZENECA-2010SE59199

PATIENT
  Age: 50 Year
  Sex: Male

DRUGS (4)
  1. SEROQUEL [Suspect]
     Indication: MANIA
     Route: 048
  2. LITHIUM CARBONATE [Concomitant]
     Indication: MANIA
  3. HYPNOTICS AND SEDATIVES [Concomitant]
  4. LAXATIVES [Concomitant]

REACTIONS (1)
  - RASH PUSTULAR [None]
